FAERS Safety Report 9458552 (Version 1)
Quarter: 2013Q3

REPORT INFORMATION
  Report Type: Spontaneous
  Country: US (occurrence: None)
  Receive Date: 20130813
  Receipt Date: 20130813
  Transmission Date: 20140515
  Serious: Yes (Other)
  Sender: FDA-Public Use
  Company Number: None

PATIENT
  Age: 1 Month
  Sex: Female
  Weight: 5.2 kg

DRUGS (10)
  1. MEROPENEM [Suspect]
     Dosage: 190 MG (APPROX. 40 MG/KG/DOS) TID INTRAVENOUS
     Route: 042
  2. AMPICILLIN [Concomitant]
  3. CEFOTAXIME [Concomitant]
  4. TOBRAMYCIN [Concomitant]
  5. GENTAMICIN [Concomitant]
  6. ACETAMINOPHEN [Concomitant]
  7. ACETAMINOPHEN [Concomitant]
  8. SIMETHICONE [Concomitant]
  9. HEPARIN [Concomitant]
  10. NS [Concomitant]

REACTIONS (1)
  - Neutropenia [None]
